FAERS Safety Report 17109630 (Version 1)
Quarter: 2019Q4

REPORT INFORMATION
  Report Type: Spontaneous
  Country: JP (occurrence: JP)
  Receive Date: 20191204
  Receipt Date: 20191204
  Transmission Date: 20200122
  Serious: Yes (Hospitalization, Other)
  Sender: FDA-Public Use
  Company Number: JP-TEVA-2019-JP-1146340

PATIENT
  Age: 16 Year
  Sex: Female

DRUGS (6)
  1. CLOZAPINE. [Suspect]
     Active Substance: CLOZAPINE
     Indication: SCHIZOPHRENIA
     Dosage: 225 MILLIGRAM DAILY; INITIAL DOSE UNKNOWN, IN THE SUBSEQUENT 3 MONTHS, DOSE INCREASED TO 225 MG/DAY
     Route: 065
  2. OLANZAPINE. [Concomitant]
     Active Substance: OLANZAPINE
     Indication: SCHIZOPHRENIA
     Dosage: 20 MILLIGRAM DAILY;
     Route: 065
  3. QUETIAPINE. [Suspect]
     Active Substance: QUETIAPINE
     Indication: SCHIZOPHRENIA
     Route: 065
  4. BLONANSERIN [Suspect]
     Active Substance: BLONANSERIN
     Dosage: 12 MILLIGRAM DAILY; ALONG WITH ARIPIPRAZOLE
     Route: 065
  5. ARIPIPRAZOLE. [Suspect]
     Active Substance: ARIPIPRAZOLE
     Indication: SCHIZOPHRENIA
     Dosage: 30 MILLIGRAM DAILY; COMBINED WITH BLONANSERIN
     Route: 065
  6. BLONANSERIN [Suspect]
     Active Substance: BLONANSERIN
     Indication: SCHIZOPHRENIA
     Dosage: 24 MILLIGRAM DAILY; AS SINGLE AGENT
     Route: 065

REACTIONS (7)
  - Neutropenia [Unknown]
  - Leukopenia [Unknown]
  - Hypoaesthesia [Unknown]
  - Nausea [Unknown]
  - Somnolence [Recovering/Resolving]
  - Akathisia [Recovered/Resolved]
  - Drug ineffective [Unknown]
